FAERS Safety Report 8098052-3 (Version None)
Quarter: 2012Q1

REPORT INFORMATION
  Report Type: 
  Country: None (occurrence: None)
  Receive Date: 20120128
  Receipt Date: 20110801
  Transmission Date: 20120608
  Serious: No
  Sender: FDA-Public Use
  Company Number: US-ABBOTT-11P-163-0842270-00

PATIENT
  Sex: Male
  Weight: 99.88 kg

DRUGS (21)
  1. TESTOSTERONE [Concomitant]
     Indication: BLOOD TESTOSTERONE DECREASED
  2. VITAMIN B-12 [Concomitant]
     Indication: PERNICIOUS ANAEMIA
  3. VYTORIN [Concomitant]
     Indication: BLOOD CHOLESTEROL INCREASED
  4. ENBREL [Suspect]
     Indication: PSORIATIC ARTHROPATHY
     Dates: end: 20110101
  5. POTASSIUM [Concomitant]
     Indication: MINERAL SUPPLEMENTATION
  6. PAXIL [Concomitant]
     Indication: DEPRESSION
  7. FISH OIL [Concomitant]
     Indication: SUPPLEMENTATION THERAPY
  8. TRANXENE [Concomitant]
     Indication: ANXIETY
  9. OXYCODONE HCL [Concomitant]
     Indication: PAIN
  10. COZAAR [Concomitant]
     Indication: HYPERTENSION
  11. PERCOCET [Concomitant]
     Indication: PAIN
  12. GABAPENTIN [Concomitant]
     Indication: NEURALGIA
  13. PREVACID [Concomitant]
     Indication: ABDOMINAL DISCOMFORT
  14. HYDROCHLOROTHIAZIDE [Concomitant]
     Indication: FLUID RETENTION
  15. ATIVAN [Concomitant]
     Indication: PANIC ATTACK
  16. COUMADIN [Concomitant]
     Indication: PULMONARY EMBOLISM
  17. MULTIVITAMIN [Concomitant]
     Indication: SUPPLEMENTATION THERAPY
  18. HUMIRA [Suspect]
     Indication: PSORIATIC ARTHROPATHY
     Dosage: 4 SHOTS TOTAL, TIB
     Dates: start: 20110401, end: 20110601
  19. HUMIRA [Suspect]
     Indication: PSORIASIS
  20. ENBREL [Suspect]
     Indication: PSORIASIS
  21. CETIRIZINE [Concomitant]
     Indication: HYPERSENSITIVITY

REACTIONS (2)
  - DYSPNOEA [None]
  - BREATH SOUNDS ABNORMAL [None]
